FAERS Safety Report 9164435 (Version 1)
Quarter: 2013Q1

REPORT INFORMATION
  Report Type: Spontaneous
  Country: US (occurrence: None)
  Receive Date: 20130313
  Receipt Date: 20130313
  Transmission Date: 20140127
  Serious: Yes (Other)
  Sender: FDA-Public Use
  Company Number: None

PATIENT
  Age: 54 Year
  Sex: Male

DRUGS (2)
  1. AMIODARONE HYDROCHLORIDE 150MG/100ML = 1.5 MG/ML APP PHARMACEUTICALS. SCHAMBURG, ILL. 60173 [Suspect]
     Indication: ATRIAL FLUTTER
     Dosage: 150MG  1 X  040
     Dates: start: 20120423
  2. AMIODARONE HYDROCHLORIDE 900MG/500ML = 1.8MG/ML APP PHARMACEUTICALS. SCHAMBURG, ILL. 60173 [Suspect]
     Dosage: 900 MG  CONTINOUS  041
     Dates: start: 20120423

REACTIONS (2)
  - Infusion site phlebitis [None]
  - Infusion related reaction [None]
